FAERS Safety Report 12162994 (Version 1)
Quarter: 2016Q1

REPORT INFORMATION
  Report Type: Spontaneous
  Country: US (occurrence: None)
  Receive Date: 20160308
  Receipt Date: 20160308
  Transmission Date: 20160526
  Serious: Yes (Other)
  Sender: FDA-Public Use
  Company Number: None

PATIENT
  Age: 78 Year
  Sex: Female

DRUGS (3)
  1. ALENDRONATE [Concomitant]
     Active Substance: ALENDRONATE SODIUM
  2. CALCIUM [Concomitant]
     Active Substance: CALCIUM
  3. ZOLEDRONIC ACID [Suspect]
     Active Substance: ZOLEDRONIC ACID
     Indication: OSTEOPOROSIS
     Dosage: INFUSE PER MD INSTRUCTIONS ONCE YEARLY
     Route: 042
     Dates: start: 20160112

REACTIONS (1)
  - Myalgia [None]

NARRATIVE: CASE EVENT DATE: 20160303
